FAERS Safety Report 10024968 (Version 1)
Quarter: 2014Q1

REPORT INFORMATION
  Report Type: Spontaneous
  Country: US (occurrence: US)
  Receive Date: 20140320
  Receipt Date: 20140320
  Transmission Date: 20141002
  Serious: Yes (Death, Other)
  Sender: FDA-Public Use
  Company Number: PHHY2014US030100

PATIENT
  Age: 56 Year
  Sex: Male

DRUGS (6)
  1. OXALIPLATIN [Suspect]
     Indication: GASTRIC CANCER STAGE IV
  2. DOCETAXEL [Suspect]
     Indication: GASTRIC CANCER STAGE IV
  3. 5-FLUOROURACIL [Suspect]
     Indication: GASTRIC CANCER STAGE IV
  4. CPT-11 [Concomitant]
     Indication: CHEMOTHERAPY
  5. BEVACIZUMAB [Concomitant]
     Indication: CHEMOTHERAPY
  6. EPIRUBICIN [Concomitant]

REACTIONS (2)
  - Death [Fatal]
  - Neuropathy peripheral [Unknown]
